FAERS Safety Report 6060964-X (Version None)
Quarter: 2009Q1

REPORT INFORMATION
  Report Type: 
  Country: None (occurrence: None)
  Receive Date: 20090129
  Receipt Date: 20090129
  Transmission Date: 20090719
  Serious: No
  Sender: FDA-Public Use
  Company Number: None

PATIENT
  Sex: Male
  Weight: 68 kg

DRUGS (5)
  1. VINCRISTINE SULFATE [Suspect]
     Dosage: 2 MG
  2. CYTARABINE [Suspect]
     Dosage: 70 MG
  3. DAUNORUBICIN HCL [Suspect]
     Dosage: 46 MG
  4. METHOTREXATE [Suspect]
     Dosage: 15 MG
  5. PEG-L ASPARAGINASE (K-H) [Suspect]
     Dosage: 4575 IU

REACTIONS (5)
  - ABASIA [None]
  - HYPOAESTHESIA [None]
  - PAIN IN EXTREMITY [None]
  - TREATMENT FAILURE [None]
  - WALKING AID USER [None]
